FAERS Safety Report 9962605 (Version 2)
Quarter: 2014Q1

REPORT INFORMATION
  Report Type: Report from Study
  Country: US (occurrence: US)
  Receive Date: 20140305
  Receipt Date: 20140305
  Transmission Date: 20141002
  Serious: Yes (Hospitalization)
  Sender: FDA-Public Use
  Company Number: US-ABBVIE-13P-163-1082163-00

PATIENT
  Age: 42 Year
  Sex: Female

DRUGS (16)
  1. HUMIRA [Suspect]
     Indication: CROHN^S DISEASE
     Route: 058
     Dates: start: 20130126, end: 20130126
  2. HUMIRA [Suspect]
     Route: 058
     Dates: start: 20130209, end: 20130209
  3. HUMIRA [Suspect]
     Route: 058
     Dates: start: 20130223, end: 20130406
  4. NORCO [Concomitant]
     Indication: PRODUCT USED FOR UNKNOWN INDICATION
     Dosage: 7.5/325MG X EVERY 4HOURS AS NEEDED
  5. DIAZEPAM [Concomitant]
     Indication: PANIC ATTACK
     Route: 048
  6. BENTYL [Concomitant]
     Indication: ABDOMINAL PAIN
  7. FIORICET WITH CAFFEINE [Concomitant]
     Indication: MIGRAINE
  8. IMITREX [Concomitant]
     Indication: MIGRAINE
  9. KLONIPIN [Concomitant]
     Indication: RESTLESS LEGS SYNDROME
  10. PRILOSEC [Concomitant]
     Indication: GASTROOESOPHAGEAL REFLUX DISEASE
  11. PAXIL [Concomitant]
     Indication: ANXIETY
  12. PAXIL [Concomitant]
     Indication: DEPRESSION
  13. XANAX [Concomitant]
     Indication: ANXIETY
  14. PHENERGAN [Concomitant]
     Indication: NAUSEA
  15. FENTANYL [Concomitant]
  16. TOPICAL PATCHES [Concomitant]
     Indication: PAIN
     Dosage: 25MG AND 12MG PATCH BOTH APPLIED EVERY 72 HOURS

REACTIONS (6)
  - Crohn^s disease [Recovered/Resolved]
  - Abscess limb [Unknown]
  - Abscess [Unknown]
  - Pain [Unknown]
  - Wound [Unknown]
  - Wound haemorrhage [Unknown]
